FAERS Safety Report 14403606 (Version 3)
Quarter: 2018Q1

REPORT INFORMATION
  Report Type: Report from Study
  Country: IL (occurrence: IL)
  Receive Date: 20180117
  Receipt Date: 20180214
  Transmission Date: 20180509
  Serious: Yes (Hospitalization)
  Sender: FDA-Public Use
  Company Number: IL-SA-2018SA010036

PATIENT
  Age: 54 Year
  Sex: Female

DRUGS (5)
  1. TOUJEO [Suspect]
     Active Substance: INSULIN GLARGINE
     Dosage: DOSE:10 UNIT(S)
     Route: 051
  2. TOUJEO [Suspect]
     Active Substance: INSULIN GLARGINE
     Dosage: DOSE:30 UNIT(S)
     Route: 051
  3. TOUJEO [Suspect]
     Active Substance: INSULIN GLARGINE
     Dosage: DOSE:35 UNIT(S)
     Route: 051
     Dates: start: 20170405
  4. METFORMIN [Suspect]
     Active Substance: METFORMIN HYDROCHLORIDE
     Route: 065
  5. SOLOSTAR [Suspect]
     Active Substance: DEVICE
     Dates: start: 20170405

REACTIONS (9)
  - Chest pain [Not Recovered/Not Resolved]
  - Overdose [Unknown]
  - Blood glucose increased [Unknown]
  - Myocardial infarction [Not Recovered/Not Resolved]
  - Visual impairment [Unknown]
  - Drug ineffective [Unknown]
  - Hypoglycaemia [Recovered/Resolved]
  - Product administered at inappropriate site [Unknown]
  - Drug administered in wrong device [Unknown]

NARRATIVE: CASE EVENT DATE: 2017
